FAERS Safety Report 19309781 (Version 1)
Quarter: 2021Q2

REPORT INFORMATION
  Report Type: Spontaneous
  Country: CA (occurrence: CA)
  Receive Date: 20210526
  Receipt Date: 20210526
  Transmission Date: 20210717
  Serious: Yes (Hospitalization, Other)
  Sender: FDA-Public Use
  Company Number: CA-ASTRAZENECA-2021A440915

PATIENT
  Age: 77 Year
  Sex: Female

DRUGS (107)
  1. CARBAMAZEPINE. [Suspect]
     Active Substance: CARBAMAZEPINE
     Indication: FIBROMYALGIA
     Dosage: 100.0 MILLIGRAM 1 EVERY .5 DAYS
     Route: 065
  2. CYCLOBENZAPRINE. [Suspect]
     Active Substance: CYCLOBENZAPRINE
     Indication: SEIZURE PROPHYLAXIS
     Dosage: 100 MILLIGRAM 1 EVERY 12 HOURS
     Route: 065
  3. DILTIAZEM HYDROCHLORIDE. [Suspect]
     Active Substance: DILTIAZEM HYDROCHLORIDE
     Indication: ANGINA PECTORIS
     Dosage: 360.0 MILLIGRAM 1 EVERY 1 DAYS
     Route: 065
  4. DILTIAZEM HYDROCHLORIDE. [Suspect]
     Active Substance: DILTIAZEM HYDROCHLORIDE
     Indication: CHEST PAIN
     Dosage: 360.0 MILLIGRAM 1 EVERY 1 DAYS
     Route: 065
  5. DIPYRIDAMOLE. [Suspect]
     Active Substance: DIPYRIDAMOLE
     Indication: CEREBROVASCULAR ACCIDENT
     Dosage: 2.0 1 EVERY 1 DAYS
     Route: 065
  6. DULCOLAX NOS [Suspect]
     Active Substance: BISACODYL OR DOCUSATE SODIUM
     Indication: CONSTIPATION
     Dosage: 1.0 1 EVERY 12 HOURS
     Route: 065
  7. GLYCERYL TRINITRATE [Suspect]
     Active Substance: NITROGLYCERIN
     Indication: CHEST PAIN
     Dosage: 1.0 1 EVERY 1 DAYS
     Route: 065
  8. GLYCERYL TRINITRATE [Suspect]
     Active Substance: NITROGLYCERIN
     Indication: CORONARY ARTERY DISEASE
     Dosage: 0.6 MILLIGRAM 1 EVERY 1 DAYS
     Route: 065
  9. LEVOTHYROXINE SODIUM. [Suspect]
     Active Substance: LEVOTHYROXINE SODIUM
     Indication: THYROID DISORDER
     Dosage: 0.8 MILLIGRAM 1 EVERY 1 DAYS
     Route: 065
  10. LEVOTHYROXINE SODIUM. [Suspect]
     Active Substance: LEVOTHYROXINE SODIUM
     Indication: THYROID DISORDER
     Dosage: 0.088 MILLIGRAM 1 EVERY 1 DAYS
     Route: 065
  11. OXAZEPAM. [Suspect]
     Active Substance: OXAZEPAM
     Indication: CORONARY ARTERY DISEASE
     Dosage: 15.0 MILLIGRAM 1 EVERY 1 DAYS
     Route: 065
  12. QUINAPRIL HYDROCHLORIDE. [Suspect]
     Active Substance: QUINAPRIL HYDROCHLORIDE
     Indication: CORONARY ARTERY DISEASE
     Dosage: 40.0 MILLIGRAM 1 EVERY 1 DAYS
     Route: 065
  13. VACCINIUM MACROCARPON/ASCORBIC ACID [Concomitant]
  14. OMEPRAZOLE. [Suspect]
     Active Substance: OMEPRAZOLE
     Indication: DUODENAL ULCER
     Dosage: 20.0MG UNKNOWN
     Route: 065
  15. ROSUVASTATIN CALCIUM. [Suspect]
     Active Substance: ROSUVASTATIN CALCIUM
     Indication: CEREBROVASCULAR ACCIDENT
     Route: 065
  16. ACEBUTOLOL HYDROCHLORIDE. [Suspect]
     Active Substance: ACEBUTOLOL HYDROCHLORIDE
     Indication: CHEST PAIN
     Dosage: 100.0 MILLIGRAM 1 EVERY 5 DAYS
     Route: 065
  17. ACEBUTOLOL HYDROCHLORIDE. [Suspect]
     Active Substance: ACEBUTOLOL HYDROCHLORIDE
     Indication: HYPERTENSION
     Dosage: 100.0 MILLIGRAM 1 EVERY 1 DAYS
     Route: 065
  18. AGGRENOX [Suspect]
     Active Substance: ASPIRIN\DIPYRIDAMOLE
     Indication: CEREBROVASCULAR ACCIDENT
     Dosage: 1.0 1 EVERY 12 HOURS
     Route: 065
  19. CARBAMAZEPINE. [Suspect]
     Active Substance: CARBAMAZEPINE
     Indication: FIBROMYALGIA
     Dosage: 200.0 MILLIGRAM 1 EVERY .5 DAYS
     Route: 065
  20. CYCLOBENZAPRINE. [Suspect]
     Active Substance: CYCLOBENZAPRINE
     Indication: FIBROMYALGIA
     Dosage: 5.0 MILLIGRAM 1 EVERY 8 HOURS
     Route: 065
  21. DULCOLAX NOS [Suspect]
     Active Substance: BISACODYL OR DOCUSATE SODIUM
     Indication: CONSTIPATION
     Dosage: 2.0 1 EVERY 1 DAYS
     Route: 065
  22. GLUCOSAMINE [Suspect]
     Active Substance: GLUCOSAMINE
     Indication: PAIN
     Dosage: 500.0 MILLIGRAM 1 EVERY .1 DAYS
     Route: 065
  23. MORPHINE SULFATE. [Suspect]
     Active Substance: MORPHINE SULFATE
     Indication: FIBROMYALGIA
     Dosage: 10.0 MILLIGRAM 1 EVERY 1 DAYS
     Route: 065
  24. MORPHINE SULFATE. [Suspect]
     Active Substance: MORPHINE SULFATE
     Indication: FIBROMYALGIA
     Dosage: 2.0 1 EVERY 1 DAYS
     Route: 065
  25. OXAZEPAM. [Suspect]
     Active Substance: OXAZEPAM
     Indication: HYPERTENSION
     Dosage: 40.0 MILLIGRAM 1 EVERY 1 DAYS
     Route: 065
  26. OXAZEPAM. [Suspect]
     Active Substance: OXAZEPAM
     Indication: CORONARY ARTERY DISEASE
     Dosage: 40.0 MILLIGRAM 1 EVERY 1 DAYS
     Route: 065
  27. ACETAMINOPHEN. [Concomitant]
     Active Substance: ACETAMINOPHEN
  28. ASPIRIN. [Concomitant]
     Active Substance: ASPIRIN
  29. AMITRIPTYLINE HYDROCHLORIDE. [Suspect]
     Active Substance: AMITRIPTYLINE HYDROCHLORIDE
     Indication: INSOMNIA
     Dosage: 50.0 MILLIGRAM 1 EVERY 1 DAYS
     Route: 065
  30. CARBAMAZEPINE. [Suspect]
     Active Substance: CARBAMAZEPINE
     Indication: SEIZURE
     Dosage: 400.0 MILLIGRAM 1 EVERY .5 DAYS
     Route: 065
  31. DILTIAZEM HYDROCHLORIDE. [Suspect]
     Active Substance: DILTIAZEM HYDROCHLORIDE
     Indication: CORONARY ARTERY DISEASE
     Dosage: 360.0 MILLIGRAM 1 EVERY 1 DAYS
     Route: 065
  32. GLYCERYL TRINITRATE [Suspect]
     Active Substance: NITROGLYCERIN
     Indication: CORONARY ARTERY DISEASE
     Dosage: 0.4 MILLIGRAM 1 EVERY 1 DAYS
     Route: 065
  33. GLYCERYL TRINITRATE [Suspect]
     Active Substance: NITROGLYCERIN
     Indication: ANGINA PECTORIS
     Dosage: 0.6 MILLIGRAM 1 EVERY 1 DAYS
     Route: 065
  34. OXAZEPAM. [Suspect]
     Active Substance: OXAZEPAM
     Indication: INSOMNIA
     Dosage: 15.0 MILLIGRAM 1 EVERY 1 DAYS
     Route: 065
  35. QUINAPRIL HYDROCHLORIDE. [Suspect]
     Active Substance: QUINAPRIL HYDROCHLORIDE
     Indication: CORONARY ARTERY DISEASE
     Dosage: 20.0 MILLIGRAM 1 EVERY 1 DAYS
     Route: 065
  36. ROSUVASTATIN CALCIUM. [Suspect]
     Active Substance: ROSUVASTATIN CALCIUM
     Indication: CEREBROVASCULAR ACCIDENT
     Route: 065
  37. CARBAMAZEPINE. [Suspect]
     Active Substance: CARBAMAZEPINE
     Indication: FIBROMYALGIA
     Dosage: 2.0 1 EVERY 1 DAYS
     Route: 065
  38. CARBAMAZEPINE. [Suspect]
     Active Substance: CARBAMAZEPINE
     Indication: SEIZURE PROPHYLAXIS
     Dosage: 200.0 MILLIGRAM 1 EVERY .5 DAYS
     Route: 065
  39. CYCLOBENZAPRINE. [Suspect]
     Active Substance: CYCLOBENZAPRINE
     Indication: SEIZURE PROPHYLAXIS
     Dosage: 200.0 MILLIGRAM 1 EVERY 12 HOURS
     Route: 065
  40. CYCLOBENZAPRINE. [Suspect]
     Active Substance: CYCLOBENZAPRINE
     Indication: SEIZURE PROPHYLAXIS
     Dosage: 5.0 MILLIGRAM 1 EVERY 12 HOURS
     Route: 065
  41. CYCLOBENZAPRINE. [Suspect]
     Active Substance: CYCLOBENZAPRINE
     Indication: PAIN
     Dosage: 5.0 MILLIGRAM 1 EVERY 12 HOURS
     Route: 065
  42. CYCLOBENZAPRINE. [Suspect]
     Active Substance: CYCLOBENZAPRINE
     Indication: SEIZURE
     Dosage: 100 MILLIGRAM 1 EVERY 12 HOURS
     Route: 065
  43. CYCLOBENZAPRINE. [Suspect]
     Active Substance: CYCLOBENZAPRINE
     Indication: FIBROMYALGIA
     Dosage: 100 MILLIGRAM 1 EVERY 12 HOURS
     Route: 065
  44. CYCLOBENZAPRINE. [Suspect]
     Active Substance: CYCLOBENZAPRINE
     Indication: PAIN
     Dosage: 100 MILLIGRAM 1 EVERY 12 HOURS
     Route: 065
  45. DILTIAZEM HYDROCHLORIDE. [Suspect]
     Active Substance: DILTIAZEM HYDROCHLORIDE
     Indication: HYPERTENSION
     Dosage: 360.0 MILLIGRAM 1 EVERY 1 DAYS
     Route: 065
  46. FUROSEMIDE. [Suspect]
     Active Substance: FUROSEMIDE
     Indication: OEDEMA
     Dosage: 4.0 MILLIGRAM 1 EVERY 1 DAYS
     Route: 065
  47. FUROSEMIDE. [Suspect]
     Active Substance: FUROSEMIDE
     Indication: OEDEMA
     Dosage: 40.0 MILLIGRAM 1 EVERY 1 DAYS
     Route: 065
  48. GLUCOSAMINE [Suspect]
     Active Substance: GLUCOSAMINE
     Indication: ARTHRITIS
     Dosage: 500.0 MILLIGRAM 1 EVERY .5 DAYS
     Route: 065
  49. GLUCOSAMINE [Suspect]
     Active Substance: GLUCOSAMINE
     Indication: ARTHRITIS
     Dosage: 500.0 MILLIGRAM 1 EVERY .1 DAYS
     Route: 065
  50. GLYCERYL TRINITRATE [Suspect]
     Active Substance: NITROGLYCERIN
     Indication: CHEST PAIN
     Dosage: 0.4 MILLIGRAM 1 EVERY 1 DAYS
     Route: 065
  51. MAGNESIUM HYDROXIDE. [Suspect]
     Active Substance: MAGNESIUM HYDROXIDE
     Indication: CONSTIPATION
     Dosage: 2.0 1 EVERY 1 DAYS
     Route: 065
  52. MORPHINE SULFATE. [Suspect]
     Active Substance: MORPHINE SULFATE
     Indication: FIBROMYALGIA
     Dosage: 10.0 MILLIGRAM 1 EVERY 1 DAYS
     Route: 065
  53. MORPHINE SULFATE. [Suspect]
     Active Substance: MORPHINE SULFATE
     Indication: PAIN
     Dosage: 10.0 MILLIGRAM 1 EVERY 1 DAYS
     Route: 065
  54. OXAZEPAM. [Suspect]
     Active Substance: OXAZEPAM
     Indication: INSOMNIA
     Dosage: 40.0 MILLIGRAM 1 EVERY 1 DAYS
     Route: 065
  55. SALBUTAMOL SULFATE [Suspect]
     Active Substance: ALBUTEROL SULFATE
     Dosage: 100.0 MILLIGRAM 1 EVERY 1 DAYS
     Route: 065
  56. CRANBERRY [VACCINIUM MACROCARPON [Concomitant]
  57. ACETAMINOPHEN/CAFFEINE [Suspect]
     Active Substance: ACETAMINOPHEN\CAFFEINE
     Indication: PAIN
     Route: 065
  58. AMLODIPINE BESILATE [Suspect]
     Active Substance: AMLODIPINE BESYLATE
     Indication: CORONARY ARTERY DISEASE
     Dosage: 5.0 MILLIGRAM 1 EVERY 1 DAYS
     Route: 065
  59. CARBAMAZEPINE. [Suspect]
     Active Substance: CARBAMAZEPINE
     Indication: SEIZURE
     Dosage: 2.0 1 EVERY 1 DAYS
     Route: 065
  60. CARBAMAZEPINE. [Suspect]
     Active Substance: CARBAMAZEPINE
     Indication: SEIZURE PROPHYLAXIS
     Dosage: 400.0 MILLIGRAM 1 EVERY .5 DAYS
     Route: 065
  61. CYCLOBENZAPRINE. [Suspect]
     Active Substance: CYCLOBENZAPRINE
     Indication: SEIZURE
     Dosage: 200.0 MILLIGRAM 1 EVERY 12 HOURS
     Route: 065
  62. CYCLOBENZAPRINE. [Suspect]
     Active Substance: CYCLOBENZAPRINE
     Indication: PAIN
     Dosage: 200.0 MILLIGRAM 1 EVERY 12 HOURS
     Route: 065
  63. CYCLOBENZAPRINE. [Suspect]
     Active Substance: CYCLOBENZAPRINE
     Indication: FIBROMYALGIA
     Dosage: 5.0 MILLIGRAM 1 EVERY 12 HOURS
     Route: 065
  64. CYCLOBENZAPRINE. [Suspect]
     Active Substance: CYCLOBENZAPRINE
     Indication: SEIZURE PROPHYLAXIS
     Dosage: 5.0 MILLIGRAM 1 EVERY 8 HOURS
     Route: 065
  65. DIPYRIDAMOLE. [Suspect]
     Active Substance: DIPYRIDAMOLE
     Indication: CEREBROVASCULAR ACCIDENT
     Dosage: 1.0 1 EVERY 12 HOURS
     Route: 065
  66. GLYCERYL TRINITRATE [Suspect]
     Active Substance: NITROGLYCERIN
     Indication: CHEST PAIN
     Dosage: 0.6 MILLIGRAM 1 EVERY 1 DAYS
     Route: 065
  67. LEVOTHYROXINE SODIUM. [Suspect]
     Active Substance: LEVOTHYROXINE SODIUM
     Indication: RADIOACTIVE IODINE THERAPY
     Dosage: 0.8 MILLIGRAM 1 EVERY 1 DAYS
     Route: 065
  68. MAGNESIUM HYDROXIDE. [Suspect]
     Active Substance: MAGNESIUM HYDROXIDE
     Indication: CONSTIPATION
     Dosage: 622.0 MILLIGRAM 1 EVERY 12 HOURS
     Route: 065
  69. MORPHINE SULFATE. [Suspect]
     Active Substance: MORPHINE SULFATE
     Indication: PAIN
     Dosage: 10.0 MILLIGRAM 1 EVERY 1 DAYS
     Route: 065
  70. MORPHINE SULFATE. [Suspect]
     Active Substance: MORPHINE SULFATE
     Indication: PAIN
     Dosage: 2.0 1 EVERY 1 DAYS
     Route: 065
  71. QUINAPRIL HYDROCHLORIDE. [Suspect]
     Active Substance: QUINAPRIL HYDROCHLORIDE
     Indication: HYPERTENSION
     Dosage: 20.0 MILLIGRAM 1 EVERY 1 DAYS
     Route: 065
  72. VACCINIUM MACROCARPON/ZINC [Concomitant]
  73. ACETYLSALICYLIC ACID, DIPYRIDAMOLE [Concomitant]
  74. ZINC. [Concomitant]
     Active Substance: ZINC
  75. ACEBUTOLOL HYDROCHLORIDE. [Suspect]
     Active Substance: ACEBUTOLOL HYDROCHLORIDE
     Indication: CORONARY ARTERY DISEASE
     Dosage: 100.0 MILLIGRAM 1 EVERY 5 DAYS
     Route: 065
  76. AMLODIPINE BESILATE [Suspect]
     Active Substance: AMLODIPINE BESYLATE
     Indication: ANGINA PECTORIS
     Dosage: 5.0 MILLIGRAM 1 EVERY 1 DAYS
     Route: 065
  77. CARBAMAZEPINE. [Suspect]
     Active Substance: CARBAMAZEPINE
     Indication: SEIZURE
     Dosage: 100.0 MILLIGRAM 1 EVERY .5 DAYS
     Route: 065
  78. CYCLOBENZAPRINE. [Suspect]
     Active Substance: CYCLOBENZAPRINE
     Indication: SEIZURE
     Dosage: 5.0 MILLIGRAM 1 EVERY 8 HOURS
     Route: 065
  79. CYCLOBENZAPRINE HYDROCHLORIDE. [Suspect]
     Active Substance: CYCLOBENZAPRINE HYDROCHLORIDE
     Indication: FIBROMYALGIA
     Dosage: 5.0 MILLIGRAM 1 EVERY 8 HOURS
     Route: 065
  80. GLYCERYL TRINITRATE [Suspect]
     Active Substance: NITROGLYCERIN
     Indication: ANGINA PECTORIS
     Dosage: 1.0 1 EVERY 1 DAYS
     Route: 065
  81. GLYCERYL TRINITRATE [Suspect]
     Active Substance: NITROGLYCERIN
     Indication: ANGINA PECTORIS
     Dosage: 0.4 MILLIGRAM 1 EVERY 1 DAYS
     Route: 065
  82. LEVOFLOXACIN. [Suspect]
     Active Substance: LEVOFLOXACIN
     Indication: URINARY TRACT INFECTION
     Dosage: 250.0 MILLIGRAM 1 EVERY 1 DAYS
     Route: 065
  83. QUINAPRIL HYDROCHLORIDE. [Suspect]
     Active Substance: QUINAPRIL HYDROCHLORIDE
     Indication: HYPERTENSION
     Dosage: 40.0 MILLIGRAM 1 EVERY 1 DAYS
     Route: 065
  84. TIOTROPIUM BROMIDE [Suspect]
     Active Substance: TIOTROPIUM BROMIDE
     Indication: CHRONIC OBSTRUCTIVE PULMONARY DISEASE
     Dosage: 18.0 MICROGRAM 1 EVERY 1 DAYS
     Route: 065
  85. FIBRE [Concomitant]
  86. ACEBUTOLOL HYDROCHLORIDE. [Suspect]
     Active Substance: ACEBUTOLOL HYDROCHLORIDE
     Indication: CORONARY ARTERY DISEASE
     Dosage: 100.0 MILLIGRAM 1 EVERY 1 DAYS
     Route: 065
  87. ACEBUTOLOL HYDROCHLORIDE. [Suspect]
     Active Substance: ACEBUTOLOL HYDROCHLORIDE
     Indication: CHEST PAIN
     Dosage: 100.0 MILLIGRAM 1 EVERY 1 DAYS
     Route: 065
  88. AMLODIPINE BESILATE [Suspect]
     Active Substance: AMLODIPINE BESYLATE
     Indication: HYPERTENSION
     Dosage: 5.0 MILLIGRAM 1 EVERY 1 DAYS
     Route: 065
  89. CARBAMAZEPINE. [Suspect]
     Active Substance: CARBAMAZEPINE
     Indication: SEIZURE
     Dosage: 200.0 MILLIGRAM 1 EVERY .5 DAYS
     Route: 065
  90. CYCLOBENZAPRINE. [Suspect]
     Active Substance: CYCLOBENZAPRINE
     Indication: SEIZURE
     Dosage: 5.0 MILLIGRAM 1 EVERY 12 HOURS
     Route: 065
  91. GALANTAMINE HYDROBROMIDE. [Suspect]
     Active Substance: GALANTAMINE HYDROBROMIDE
     Indication: DEMENTIA
     Dosage: 16.0 MILLIGRAM 1 EVERY 1 DAYS
     Route: 065
  92. GLUCOSAMINE [Suspect]
     Active Substance: GLUCOSAMINE
     Indication: PAIN
     Dosage: 500.0 MILLIGRAM 1 EVERY .5 DAYS
     Route: 065
  93. GLYCERYL TRINITRATE [Suspect]
     Active Substance: NITROGLYCERIN
     Indication: CORONARY ARTERY DISEASE
     Dosage: 1.0 1 EVERY 1 DAYS
     Route: 065
  94. LEVOFLOXACIN. [Suspect]
     Active Substance: LEVOFLOXACIN
     Indication: URINARY TRACT INFECTION
     Dosage: 2.0 1 EVERY 1 DAYS
     Route: 065
  95. LEVOTHYROXINE SODIUM. [Suspect]
     Active Substance: LEVOTHYROXINE SODIUM
     Indication: RADIOACTIVE IODINE THERAPY
     Dosage: 0.088 MILLIGRAM 1 EVERY 1 DAYS
     Route: 065
  96. SPIRIVA [Suspect]
     Active Substance: TIOTROPIUM BROMIDE MONOHYDRATE
     Indication: CHRONIC OBSTRUCTIVE PULMONARY DISEASE
     Dosage: 18.0 MICROGRAM 1 EVERY 1 DAYS
     Route: 065
  97. OMEPRAZOLE. [Suspect]
     Active Substance: OMEPRAZOLE
     Indication: DUODENAL ULCER
     Route: 065
  98. ACEBUTOLOL HYDROCHLORIDE. [Suspect]
     Active Substance: ACEBUTOLOL HYDROCHLORIDE
     Indication: HYPERTENSION
     Dosage: 100.0 MILLIGRAM 1 EVERY 5 DAYS
     Route: 065
  99. DIAZEPAM. [Suspect]
     Active Substance: DIAZEPAM
     Indication: INSOMNIA
     Dosage: 75.0 MILLIGRAM 1 EVERY 1 DAYS
     Route: 065
  100. CARBAMAZEPINE. [Suspect]
     Active Substance: CARBAMAZEPINE
     Indication: SEIZURE PROPHYLAXIS
     Dosage: 2.0 1 EVERY 1 DAYS
     Route: 065
  101. CARBAMAZEPINE. [Suspect]
     Active Substance: CARBAMAZEPINE
     Indication: SEIZURE PROPHYLAXIS
     Dosage: 100.0 MILLIGRAM 1 EVERY .5 DAYS
     Route: 065
  102. CARBAMAZEPINE. [Suspect]
     Active Substance: CARBAMAZEPINE
     Indication: FIBROMYALGIA
     Dosage: 400.0 MILLIGRAM 1 EVERY .5 DAYS
     Route: 065
  103. CYCLOBENZAPRINE. [Suspect]
     Active Substance: CYCLOBENZAPRINE
     Indication: FIBROMYALGIA
     Dosage: 200.0 MILLIGRAM 1 EVERY 12 HOURS
     Route: 065
  104. CYCLOBENZAPRINE. [Suspect]
     Active Substance: CYCLOBENZAPRINE
     Indication: PAIN
     Dosage: 5.0 MILLIGRAM 1 EVERY 8 HOURS
     Route: 065
  105. LACTULOSE. [Suspect]
     Active Substance: LACTULOSE
     Indication: CONSTIPATION
     Dosage: 15.0 MILLIGRAM 1 EVERY 1 DAYS
     Route: 048
  106. OXAZEPAM. [Suspect]
     Active Substance: OXAZEPAM
     Indication: HYPERTENSION
     Dosage: 15.0 MILLIGRAM 1 EVERY 1 DAYS
     Route: 065
  107. SALBUTAMOL SULFATE [Suspect]
     Active Substance: ALBUTEROL SULFATE
     Dosage: 400.0 MICROGRAM 1 EVERY 6 HOURS
     Route: 065

REACTIONS (14)
  - Balance disorder [Recovered/Resolved]
  - Fall [Recovered/Resolved]
  - Orthostatic hypotension [Recovered/Resolved]
  - Constipation [Recovered/Resolved]
  - Cognitive disorder [Recovered/Resolved]
  - Depressed level of consciousness [Recovered/Resolved]
  - Mobility decreased [Recovered/Resolved]
  - Pain [Recovered/Resolved]
  - Sedation complication [Recovered/Resolved]
  - Creatinine renal clearance decreased [Recovered/Resolved]
  - Hypotension [Recovered/Resolved]
  - Blood calcium decreased [Recovered/Resolved]
  - Sedation [Recovered/Resolved]
  - Toxicity to various agents [Recovered/Resolved]
